FAERS Safety Report 10310182 (Version 4)
Quarter: 2015Q2

REPORT INFORMATION
  Report Type: Report from Study
  Country: US (occurrence: US)
  Receive Date: 20140717
  Receipt Date: 20150528
  Transmission Date: 20150821
  Serious: Yes (Other)
  Sender: FDA-Public Use
  Company Number: US-ROCHE-1435578

PATIENT
  Age: 10 Year
  Sex: Female
  Weight: 26.8 kg

DRUGS (11)
  1. NUTROPIN AQ [Suspect]
     Active Substance: SOMATROPIN
     Indication: FAILURE TO THRIVE
     Route: 058
  2. NUTROPIN AQ [Suspect]
     Active Substance: SOMATROPIN
     Dosage: 7 DAYS/WEEK
     Route: 058
  3. POTASSIUM CHLORIDE. [Concomitant]
     Active Substance: POTASSIUM CHLORIDE
     Route: 048
  4. POTASSIUM CHLORIDE. [Concomitant]
     Active Substance: POTASSIUM CHLORIDE
     Route: 048
  5. EPLERENONE. [Concomitant]
     Active Substance: EPLERENONE
     Dosage: IN MORNING
     Route: 065
  6. NUTROPIN AQ [Suspect]
     Active Substance: SOMATROPIN
     Dosage: AM
     Route: 058
     Dates: start: 20140106
  7. NUTROPIN AQ [Suspect]
     Active Substance: SOMATROPIN
     Dosage: PM
     Route: 058
     Dates: start: 20140106
  8. ZANTAC [Concomitant]
     Active Substance: RANITIDINE HYDROCHLORIDE
  9. AMILORIDE [Concomitant]
     Active Substance: AMILORIDE
     Route: 065
  10. ZETIA [Concomitant]
     Active Substance: EZETIMIBE
     Dosage: QHS
     Route: 065
  11. SPIRONOLACTONE. [Concomitant]
     Active Substance: SPIRONOLACTONE
     Dosage: THREE TABLETS AT PM
     Route: 048

REACTIONS (10)
  - Insulin-like growth factor increased [Unknown]
  - Injection site swelling [Recovered/Resolved]
  - Incorrect dose administered [Unknown]
  - Blood calcium increased [Unknown]
  - Injection site haemorrhage [Recovered/Resolved]
  - Device issue [Unknown]
  - Injection site pain [Recovered/Resolved]
  - Injection site bruising [Recovered/Resolved]
  - Blood potassium increased [Unknown]
  - Myalgia [Unknown]

NARRATIVE: CASE EVENT DATE: 20150518
